FAERS Safety Report 13705257 (Version 2)
Quarter: 2017Q2

REPORT INFORMATION
  Report Type: Spontaneous
  Country: CY (occurrence: CY)
  Receive Date: 20170630
  Receipt Date: 20170630
  Transmission Date: 20170830
  Serious: Yes (Hospitalization)
  Sender: FDA-Public Use
  Company Number: CY-BAYER-2017-121330

PATIENT
  Age: 45 Year
  Sex: Female

DRUGS (5)
  1. CLARITYNE 10 MG [Suspect]
     Active Substance: LORATADINE
     Dosage: UNK
     Route: 048
     Dates: start: 20170530
  2. ZITHROMAX [Concomitant]
     Active Substance: AZITHROMYCIN DIHYDRATE
     Dosage: UNK
     Dates: start: 2017, end: 20170527
  3. FLUTICASONE. [Concomitant]
     Active Substance: FLUTICASONE
     Dosage: 250 MCG
  4. SOLMUCOL [Concomitant]
     Active Substance: ACETYLCYSTEINE
  5. CLARITYNE-D REPETABS [Suspect]
     Active Substance: LORATADINE\PSEUDOEPHEDRINE SULFATE
     Dosage: UNK
     Route: 048
     Dates: start: 20170517, end: 20170526

REACTIONS (2)
  - Purpura [None]
  - Thrombocytopenia [None]

NARRATIVE: CASE EVENT DATE: 20170616
